FAERS Safety Report 16544766 (Version 1)
Quarter: 2019Q3

REPORT INFORMATION
  Report Type: Other
  Country: CN (occurrence: CN)
  Receive Date: 20190709
  Receipt Date: 20190709
  Transmission Date: 20191004
  Serious: Yes (Other)
  Sender: FDA-Public Use
  Company Number: CN-AGG-12-2017-1845

PATIENT

DRUGS (5)
  1. ASPIRIN. [Concomitant]
     Active Substance: ASPIRIN
  2. ASPIRIN. [Concomitant]
     Active Substance: ASPIRIN
     Dosage: LOADING DOSE
  3. P2Y12 INHIBITORS (CLOPIDOGREL OR TICAGRELOR) [Concomitant]
  4. AGGRASTAT [Suspect]
     Active Substance: TIROFIBAN HYDROCHLORIDE
     Indication: ANTIPLATELET THERAPY
  5. HEPARIN [Concomitant]
     Active Substance: HEPARIN SODIUM

REACTIONS (1)
  - Haemorrhage [Unknown]
